FAERS Safety Report 16194613 (Version 1)
Quarter: 2019Q2

REPORT INFORMATION
  Report Type: Report from Study
  Country: None (occurrence: US)
  Receive Date: 20190414
  Receipt Date: 20190414
  Transmission Date: 20190711
  Serious: Yes (Hospitalization)
  Sender: FDA-Public Use
  Company Number: US-ABBVIE-19K-163-2741223-00

PATIENT
  Age: 49 Year
  Sex: Female

DRUGS (2)
  1. LISINOPRIL. [Suspect]
     Active Substance: LISINOPRIL
     Indication: HYPERTENSION
     Route: 065
  2. HUMIRA [Suspect]
     Active Substance: ADALIMUMAB
     Indication: HIDRADENITIS
     Dosage: HUMIRA CF PEN
     Route: 058
     Dates: start: 20190315

REACTIONS (2)
  - Dyspnoea [Recovered/Resolved]
  - Swollen tongue [Recovered/Resolved]

NARRATIVE: CASE EVENT DATE: 20190331
